FAERS Safety Report 6474919-4 (Version None)
Quarter: 2009Q4

REPORT INFORMATION
  Report Type: 
  Country: None (occurrence: None)
  Receive Date: 20091204
  Receipt Date: 20091124
  Transmission Date: 20100525
  Serious: Yes (Other)
  Sender: FDA-Public Use
  Company Number: IE-WATSON-2009-10124

PATIENT
  Age: 38 Year
  Sex: Female

DRUGS (1)
  1. HEPARIN SODIUM [Suspect]
     Indication: UTERINE FIBROID EMBOLISATION
     Dosage: UNK
     Dates: start: 19981204

REACTIONS (3)
  - HEPARIN-INDUCED THROMBOCYTOPENIA [None]
  - REVERSIBLE POSTERIOR LEUKOENCEPHALOPATHY SYNDROME [None]
  - WHITE CLOT SYNDROME [None]
